FAERS Safety Report 9613668 (Version 1)
Quarter: 2013Q4

REPORT INFORMATION
  Report Type: Report from Study
  Country: KR (occurrence: KR)
  Receive Date: 20131010
  Receipt Date: 20131010
  Transmission Date: 20140711
  Serious: Yes (Death, Other)
  Sender: FDA-Public Use
  Company Number: KR-BAXTER-2013BAX039805

PATIENT
  Sex: Male

DRUGS (12)
  1. ENDOXAN INJ 500MG [Suspect]
     Indication: MEDULLOBLASTOMA
     Dosage: ON DAY 1
     Route: 065
  2. ENDOXAN INJ 500MG [Suspect]
     Dosage: ON DAYS -8 TO -5
     Route: 065
  3. IRINOTECAN [Suspect]
     Indication: MEDULLOBLASTOMA
     Dosage: ON DAY 0
     Route: 065
  4. VINCRISTINE [Suspect]
     Indication: MEDULLOBLASTOMA
     Dosage: ON DAY 0
     Route: 065
  5. CISPLATIN [Suspect]
     Indication: MEDULLOBLASTOMA
     Dosage: ON DAY 0
     Route: 065
  6. ETOPOSIDE [Suspect]
     Indication: MEDULLOBLASTOMA
     Dosage: ON DAYS 0-2
     Route: 065
  7. ETOPOSIDE [Suspect]
     Dosage: ON DAYS -5 TO -3
     Route: 065
  8. CARBOPLATIN [Suspect]
     Indication: MEDULLOBLASTOMA
     Dosage: ON DAYS -8 TO -6
     Route: 065
  9. THIOTEPA [Suspect]
     Indication: MEDULLOBLASTOMA
     Dosage: ON DAYS -5 TO -3
     Route: 065
  10. MELPHALAN [Suspect]
     Indication: MEDULLOBLASTOMA
     Dosage: ON DAYS -4 TO -2
     Route: 065
  11. ATROPINE [Concomitant]
     Indication: PROPHYLAXIS
     Route: 065
  12. FILGRASTIM [Concomitant]
     Indication: PROPHYLAXIS
     Route: 065

REACTIONS (3)
  - Disease progression [Fatal]
  - Neutropenia [Unknown]
  - Thrombocytopenia [Unknown]
